FAERS Safety Report 20986191 (Version 1)
Quarter: 2022Q2

REPORT INFORMATION
  Report Type: Spontaneous
  Country: US (occurrence: US)
  Receive Date: 20220621
  Receipt Date: 20220621
  Transmission Date: 20220721
  Serious: No
  Sender: FDA-Public Use
  Company Number: US-BRISTOL-MYERS SQUIBB COMPANY-2022-047174

PATIENT
  Age: 62 Year
  Sex: Female

DRUGS (1)
  1. SPRYCEL [Interacting]
     Active Substance: DASATINIB
     Indication: Product used for unknown indication
     Dosage: DOSE : UNKNOWN;     FREQ : ONCE DAILY
     Route: 048
     Dates: start: 201910

REACTIONS (2)
  - Helicobacter infection [Unknown]
  - Drug interaction [Unknown]
